FAERS Safety Report 7835144-5 (Version None)
Quarter: 2011Q4

REPORT INFORMATION
  Report Type: 
  Country: None (occurrence: None)
  Receive Date: 20111024
  Receipt Date: 20110914
  Transmission Date: 20120403
  Serious: Yes (Other)
  Sender: FDA-Public Use
  Company Number: PHHY2011BR86308

PATIENT
  Age: 27 Year
  Sex: Male
  Weight: 76 kg

DRUGS (4)
  1. CARVEDILOL [Concomitant]
     Dosage: 6.25 MG, BID
  2. COUMADIN [Concomitant]
     Dosage: 5 MG, QD
  3. CAPTOPRIL [Suspect]
     Dosage: 25 MG, TID
     Route: 048
  4. SPIRONOLACTONE [Concomitant]
     Dosage: 25 MG, QD

REACTIONS (3)
  - MICROALBUMINURIA [None]
  - CARDIOMEGALY [None]
  - GYNAECOMASTIA [None]
